FAERS Safety Report 4497114-7 (Version None)
Quarter: 2004Q4

REPORT INFORMATION
  Report Type: 
  Country: None (occurrence: None)
  Receive Date: 20041110
  Receipt Date: 20041103
  Transmission Date: 20050328
  Serious: Yes (Hospitalization)
  Sender: FDA-Public Use
  Company Number: FR-BRISTOL-MYERS SQUIBB COMPANY-12755518

PATIENT
  Age: 74 Year
  Sex: Female

DRUGS (8)
  1. ELISOR TABS 20 MG [Suspect]
     Route: 048
     Dates: start: 20040913, end: 20040922
  2. ZOCOR [Suspect]
     Indication: HYPERCHOLESTEROLAEMIA
     Route: 048
     Dates: start: 20040803, end: 20040816
  3. MEDIATENSYL [Concomitant]
     Dates: start: 20030615
  4. OMEPRAZOLE [Concomitant]
  5. LASILIX FAIBLE [Concomitant]
     Dates: start: 20020615
  6. AMLOR [Concomitant]
     Dates: start: 20010615
  7. APROVEL [Concomitant]
     Dosage: DOSAGE FORM = TABLET
     Dates: start: 20020615
  8. DIFFU-K [Concomitant]
     Dosage: DOSAGE FORM = TABLET

REACTIONS (2)
  - FAECAL INCONTINENCE [None]
  - URINARY INCONTINENCE [None]
